FAERS Safety Report 8171009-X (Version None)
Quarter: 2012Q1

REPORT INFORMATION
  Report Type: 
  Country: None (occurrence: None)
  Receive Date: 20120228
  Receipt Date: 20120223
  Transmission Date: 20120608
  Serious: Yes (Other)
  Sender: FDA-Public Use
  Company Number: US-VERTEX PHARMACEUTICALS INC.-AE-2011-003083

PATIENT
  Sex: Female
  Weight: 67.646 kg

DRUGS (13)
  1. TRIAMCINOLONE ACETONIDE [Concomitant]
  2. DEXTROSE [Concomitant]
  3. CENTRUM KIDS [Concomitant]
  4. PROAIR HFA [Concomitant]
  5. INCIVEK [Suspect]
     Indication: HEPATITIS C
     Route: 048
     Dates: start: 20110829, end: 20111103
  6. HYDROXYZINE PAMOATE [Concomitant]
  7. IBUPROFEN [Concomitant]
  8. ZYLET [Concomitant]
  9. RIBAVIRIN [Concomitant]
     Indication: HEPATITIS C
     Route: 048
     Dates: start: 20110829, end: 20111103
  10. PEGASYS [Concomitant]
     Indication: HEPATITIS C
     Route: 058
     Dates: start: 20110829, end: 20111103
  11. CITALOPRAM HYDROBROMIDE [Concomitant]
  12. IMODIUM [Concomitant]
  13. CALCIUM CARBONATE [Concomitant]

REACTIONS (6)
  - RETINOPATHY [None]
  - ANAEMIA [None]
  - RETINAL HAEMORRHAGE [None]
  - FATIGUE [None]
  - OCULAR ISCHAEMIC SYNDROME [None]
  - DYSPNOEA [None]
